FAERS Safety Report 18655916 (Version 1)
Quarter: 2020Q4

REPORT INFORMATION
  Report Type: Spontaneous
  Country: US (occurrence: US)
  Receive Date: 20201223
  Receipt Date: 20201223
  Transmission Date: 20210114
  Serious: Yes (Other)
  Sender: FDA-Public Use
  Company Number: US-COOPERSURGICAL, INC.-US-2020CPS000406

PATIENT
  Age: 27 Year
  Sex: Female
  Weight: 68.27 kg

DRUGS (1)
  1. PARAGARD T 380A [Suspect]
     Active Substance: COPPER
     Indication: PRODUCT USED FOR UNKNOWN INDICATION
     Dosage: UNK
     Route: 015
     Dates: start: 20120131

REACTIONS (10)
  - Device breakage [Not Recovered/Not Resolved]
  - Uterine perforation [Not Recovered/Not Resolved]
  - Pain [Unknown]
  - Foreign body in reproductive tract [Not Recovered/Not Resolved]
  - Complication of device removal [Not Recovered/Not Resolved]
  - Discomfort [Unknown]
  - Device dislocation [Not Recovered/Not Resolved]
  - Dysfunctional uterine bleeding [Unknown]
  - Embedded device [Not Recovered/Not Resolved]
  - Injury [Not Recovered/Not Resolved]

NARRATIVE: CASE EVENT DATE: 20200207
